FAERS Safety Report 10201072 (Version 1)
Quarter: 2014Q2

REPORT INFORMATION
  Report Type: Spontaneous
  Country: US (occurrence: US)
  Receive Date: 20140528
  Receipt Date: 20140528
  Transmission Date: 20141212
  Serious: No
  Sender: FDA-Public Use
  Company Number: US-BAYER-2014-075723

PATIENT
  Age: 27 Year
  Sex: Female

DRUGS (1)
  1. MIRENA [Suspect]
     Indication: POLYCYSTIC OVARIES
     Dosage: 20 MCG/24HR, CONT
     Route: 015
     Dates: start: 201004

REACTIONS (6)
  - Amenorrhoea [None]
  - Abdominal pain lower [None]
  - Vaginal haemorrhage [None]
  - Abdominal discomfort [None]
  - Feeling hot [None]
  - Off label use [None]
